FAERS Safety Report 4996596-1 (Version None)
Quarter: 2006Q2

REPORT INFORMATION
  Report Type: 
  Country: None (occurrence: None)
  Receive Date: 20060505
  Receipt Date: 20060428
  Transmission Date: 20061013
  Serious: Yes (Other)
  Sender: FDA-Public Use
  Company Number: 13944

PATIENT
  Age: 33 Year
  Sex: Female
  Weight: 66 kg

DRUGS (8)
  1. MORPHINE [Suspect]
     Indication: SPINAL ANAESTHESIA
     Dosage: 100 MICROGRAM ONCE IT
     Route: 037
  2. BUPIVACAINE [Concomitant]
  3. LACTATED RINGER'S [Concomitant]
  4. EPHEDRINE [Concomitant]
  5. OXYTOCIN [Concomitant]
  6. CEFAZOLIN [Concomitant]
  7. ONDANSETRON HCL [Concomitant]
  8. DROPERIDOL [Concomitant]

REACTIONS (6)
  - CONFUSIONAL STATE [None]
  - DRUG EXPOSURE DURING PREGNANCY [None]
  - HYPERHIDROSIS [None]
  - HYPOTHERMIA [None]
  - NAUSEA [None]
  - POST PROCEDURAL COMPLICATION [None]
